FAERS Safety Report 7980090-X (Version None)
Quarter: 2011Q4

REPORT INFORMATION
  Report Type: 
  Country: None (occurrence: None)
  Receive Date: 20111214
  Receipt Date: 20111208
  Transmission Date: 20120403
  Serious: Yes (Death)
  Sender: FDA-Public Use
  Company Number: PH-MERCK-1112USA01323

PATIENT
  Age: 90 Year
  Sex: Female

DRUGS (6)
  1. MEROPENEM [Concomitant]
     Indication: SEPTIC SHOCK
     Route: 065
     Dates: start: 20110701
  2. CANCIDAS [Suspect]
     Indication: ORAL CANDIDIASIS
     Route: 042
     Dates: start: 20110727, end: 20110727
  3. CANCIDAS [Suspect]
     Route: 042
     Dates: start: 20110728, end: 20110728
  4. CANCIDAS [Suspect]
     Indication: FUNGAL INFECTION
     Route: 042
     Dates: start: 20110727, end: 20110727
  5. AZITHROMYCIN [Concomitant]
     Indication: SEPTIC SHOCK
     Route: 065
     Dates: start: 20110701
  6. CANCIDAS [Suspect]
     Route: 042
     Dates: start: 20110728, end: 20110728

REACTIONS (2)
  - MULTI-ORGAN FAILURE [None]
  - HEPATIC ENZYME INCREASED [None]
